FAERS Safety Report 15149337 (Version 2)
Quarter: 2018Q3

REPORT INFORMATION
  Report Type: Spontaneous
  Country: AT (occurrence: AT)
  Receive Date: 20180716
  Receipt Date: 20180824
  Transmission Date: 20181010
  Serious: Yes (Other)
  Sender: FDA-Public Use
  Company Number: AT-OTSUKA-2018_019058

PATIENT
  Age: 21 Year
  Sex: Female

DRUGS (5)
  1. SOLIAN [Suspect]
     Active Substance: AMISULPRIDE
     Dosage: 200 MG, UNK
     Route: 065
     Dates: start: 20180131, end: 20180214
  2. ABILIFY [Suspect]
     Active Substance: ARIPIPRAZOLE
     Indication: PRODUCT USED FOR UNKNOWN INDICATION
     Dosage: UNK UNK, QD (10)
     Route: 065
     Dates: start: 20180108, end: 20180110
  3. SOLIAN [Suspect]
     Active Substance: AMISULPRIDE
     Dosage: 200 MG, UNK
     Route: 065
     Dates: start: 20180111, end: 20180116
  4. SOLIAN [Suspect]
     Active Substance: AMISULPRIDE
     Indication: PRODUCT USED FOR UNKNOWN INDICATION
     Dosage: 400 MG, UNK
     Route: 065
     Dates: start: 20180117, end: 20180130
  5. EUTHYROX [Concomitant]
     Active Substance: LEVOTHYROXINE SODIUM
     Indication: PRODUCT USED FOR UNKNOWN INDICATION
     Dosage: 50 MG, UNK
     Route: 065
     Dates: start: 20180108, end: 20180214

REACTIONS (1)
  - Galactorrhoea [Recovered/Resolved]

NARRATIVE: CASE EVENT DATE: 20180130
